FAERS Safety Report 23566782 (Version 1)
Quarter: 2024Q1

REPORT INFORMATION
  Report Type: Spontaneous
  Country: US (occurrence: US)
  Receive Date: 20240226
  Receipt Date: 20240226
  Transmission Date: 20240409
  Serious: No
  Sender: FDA-Public Use
  Company Number: US-AMNEAL PHARMACEUTICALS-2023-AMRX-01637

PATIENT
  Sex: Female
  Weight: 67.574 kg

DRUGS (1)
  1. RYTARY [Suspect]
     Active Substance: CARBIDOPA\LEVODOPA
     Indication: Product used for unknown indication
     Dosage: 2 (36.25-145 MG) CAPSULES, 4 /DAY
     Route: 048
     Dates: start: 20230429, end: 20230502

REACTIONS (2)
  - Tremor [Unknown]
  - Drug ineffective [Unknown]
